FAERS Safety Report 7828108-9 (Version None)
Quarter: 2011Q4

REPORT INFORMATION
  Report Type: 
  Country: None (occurrence: None)
  Receive Date: 20111018
  Receipt Date: 20111006
  Transmission Date: 20120403
  Serious: Yes (Life-Threatening)
  Sender: FDA-Public Use
  Company Number: 1048315

PATIENT
  Age: 74 Year
  Sex: Female
  Weight: 68 kg

DRUGS (5)
  1. (ACETATE RINGERS) [Concomitant]
  2. (NITROGLYCEIRN) [Concomitant]
  3. DEXMEDETOMIDINE HYDROCHLORIDE [Suspect]
     Indication: SEDATION
     Dosage: 0.8 MCG/KG/HR, INTRAVENOUS DRIP ; 0.4 MCG/KG/HR INTRAVENOUS DRIP
     Route: 041
     Dates: start: 20110906
  4. DEXMEDETOMIDINE HYDROCHLORIDE [Suspect]
     Indication: SEDATION
     Dosage: 0.8 MCG/KG/HR, INTRAVENOUS DRIP ; 0.4 MCG/KG/HR INTRAVENOUS DRIP
     Route: 041
     Dates: start: 20110906, end: 20110907
  5. DEXTROSE [Concomitant]

REACTIONS (1)
  - ATRIOVENTRICULAR BLOCK SECOND DEGREE [None]
